FAERS Safety Report 23898184 (Version 2)
Quarter: 2024Q2

REPORT INFORMATION
  Report Type: Report from Study
  Country: BR (occurrence: None)
  Receive Date: 20240524
  Receipt Date: 20240528
  Transmission Date: 20240716
  Serious: Yes (Hospitalization, Other)
  Sender: FDA-Public Use
  Company Number: 2024A120527

PATIENT
  Age: 75 Year
  Sex: Female

DRUGS (5)
  1. DAPAGLIFLOZIN [Suspect]
     Active Substance: DAPAGLIFLOZIN
     Indication: Diabetes mellitus
     Dosage: ONCE
     Route: 048
  2. DAPAGLIFLOZIN [Suspect]
     Active Substance: DAPAGLIFLOZIN
     Indication: Hypertension
     Dosage: ONCE
     Route: 048
  3. CARBAMAZEPINE [Concomitant]
     Active Substance: CARBAMAZEPINE
  4. IBUPROFEN [Concomitant]
     Active Substance: IBUPROFEN
  5. NPH INSULIN [Concomitant]
     Active Substance: INSULIN BEEF

REACTIONS (7)
  - Skin laceration [Unknown]
  - Skin infection [Recovered/Resolved]
  - Nodule [Unknown]
  - Skin mass [Recovered/Resolved]
  - Visual impairment [Unknown]
  - Peripheral swelling [Unknown]
  - Diabetes mellitus [Not Recovered/Not Resolved]
